FAERS Safety Report 8136226-3 (Version None)
Quarter: 2012Q1

REPORT INFORMATION
  Report Type: 
  Country: None (occurrence: None)
  Receive Date: 20120214
  Receipt Date: 20120213
  Transmission Date: 20120608
  Serious: Yes (Other)
  Sender: FDA-Public Use
  Company Number: US-JNJFOC-2008024807

PATIENT
  Sex: Male
  Weight: 83.9 kg

DRUGS (4)
  1. ZOCOR [Concomitant]
     Indication: HYPERLIPIDAEMIA
     Route: 065
  2. PEPCID AC [Suspect]
     Indication: GASTROOESOPHAGEAL REFLUX DISEASE
     Route: 048
     Dates: start: 20071201, end: 20080919
  3. BENADRYL [Suspect]
     Indication: MULTIPLE ALLERGIES
     Route: 048
     Dates: start: 20071201, end: 20080919
  4. BENADRYL [Suspect]
     Route: 048

REACTIONS (5)
  - NAUSEA [None]
  - ABDOMINAL PAIN UPPER [None]
  - DIARRHOEA HAEMORRHAGIC [None]
  - PRODUCT CONTAMINATION [None]
  - VOMITING [None]
